FAERS Safety Report 21197154 (Version 2)
Quarter: 2022Q3

REPORT INFORMATION
  Report Type: Spontaneous
  Country: DE (occurrence: DE)
  Receive Date: 20220810
  Receipt Date: 20220831
  Transmission Date: 20221027
  Serious: Yes (Other)
  Sender: FDA-Public Use
  Company Number: DE-TEVA-2022-DE-2054928

PATIENT
  Age: 68 Year
  Sex: Female

DRUGS (6)
  1. CAPTOPRIL [Interacting]
     Active Substance: CAPTOPRIL
     Indication: Product used for unknown indication
     Dosage: UNK
     Route: 065
  2. CLONIDINE [Interacting]
     Active Substance: CLONIDINE
     Indication: Blood pressure abnormal
     Dosage: 150 MICROGRAM DAILY;
     Route: 048
  3. VITAMINS [Concomitant]
     Active Substance: VITAMINS
     Indication: Product used for unknown indication
     Dosage: UNK
     Route: 065
  4. FOLIC ACID [Concomitant]
     Active Substance: FOLIC ACID
     Indication: Product used for unknown indication
     Dosage: UNK
     Route: 065
  5. FRAGMIN [Concomitant]
     Active Substance: DALTEPARIN SODIUM
     Indication: Thrombosis
     Dosage: UNK
     Route: 065
  6. VITAMIN C [Concomitant]
     Active Substance: ASCORBIC ACID
     Indication: Product used for unknown indication
     Dosage: UNK
     Route: 065

REACTIONS (15)
  - Dyspnoea [Not Recovered/Not Resolved]
  - Paraesthesia [Unknown]
  - Drug ineffective [Unknown]
  - Musculoskeletal chest pain [Unknown]
  - Peripheral coldness [Not Recovered/Not Resolved]
  - Contusion [Recovered/Resolved]
  - Dysphonia [Not Recovered/Not Resolved]
  - Gastrooesophageal reflux disease [Not Recovered/Not Resolved]
  - Drug interaction [Unknown]
  - Flushing [Not Recovered/Not Resolved]
  - Dry mouth [Unknown]
  - Cough [Not Recovered/Not Resolved]
  - Myalgia [Unknown]
  - Headache [Unknown]
  - Nausea [Unknown]

NARRATIVE: CASE EVENT DATE: 20220710
